FAERS Safety Report 9312421 (Version 1)
Quarter: 2013Q2

REPORT INFORMATION
  Report Type: Spontaneous
  Country: US (occurrence: US)
  Receive Date: 20130528
  Receipt Date: 20130528
  Transmission Date: 20140414
  Serious: No
  Sender: FDA-Public Use
  Company Number: US-BRISTOL-MYERS SQUIBB COMPANY-17403395

PATIENT
  Age: 67 Year
  Sex: Female
  Weight: 95.24 kg

DRUGS (2)
  1. KOMBIGLYZE XR [Suspect]
     Indication: TYPE 2 DIABETES MELLITUS
     Dosage: 1 DF: 2.5/1000; 60 TABLETS?MORNING AND EVENING
     Route: 048
     Dates: start: 20120502
  2. WELCHOL [Suspect]
     Dosage: TABS
     Route: 048
     Dates: start: 20120605, end: 20130228

REACTIONS (1)
  - Alopecia [Not Recovered/Not Resolved]
